FAERS Safety Report 5930390-X (Version None)
Quarter: 2008Q4

REPORT INFORMATION
  Report Type: 
  Country: None (occurrence: None)
  Receive Date: 20081022
  Receipt Date: 20081009
  Transmission Date: 20090506
  Serious: No
  Sender: FDA-Public Use
  Company Number: US024851

PATIENT
  Age: 18 Year
  Sex: Male
  Weight: 68.0396 kg

DRUGS (3)
  1. FENTORA [Suspect]
     Dosage: BUCCAL
     Route: 002
  2. VALIUM [Concomitant]
  3. OXYCODONE AND ACETAMINOPHEN [Concomitant]

REACTIONS (3)
  - ACCIDENTAL EXPOSURE [None]
  - INCORRECT ROUTE OF DRUG ADMINISTRATION [None]
  - SOMNOLENCE [None]
